FAERS Safety Report 5369188-2 (Version None)
Quarter: 2007Q2

REPORT INFORMATION
  Report Type: 
  Country: None (occurrence: None)
  Receive Date: 20070625
  Receipt Date: 20070615
  Transmission Date: 20071010
  Serious: Yes (Life-Threatening, Hospitalization)
  Sender: FDA-Public Use
  Company Number: US-ROCHE-502614

PATIENT
  Age: 59 Year
  Sex: Female
  Weight: 49.9 kg

DRUGS (2)
  1. BONIVA [Suspect]
     Indication: OSTEOPOROSIS
     Route: 048
     Dates: start: 20070418, end: 20070418
  2. BONIVA [Suspect]
     Route: 048
     Dates: start: 20070601

REACTIONS (1)
  - CEREBRAL HAEMORRHAGE [None]
